FAERS Safety Report 16928537 (Version 2)
Quarter: 2019Q4

REPORT INFORMATION
  Report Type: Spontaneous
  Country: ES (occurrence: ES)
  Receive Date: 20191017
  Receipt Date: 20191218
  Transmission Date: 20200122
  Serious: Yes (Other)
  Sender: FDA-Public Use
  Company Number: ES-ASTRAZENECA-2019SF44910

PATIENT
  Age: 82 Year
  Sex: Female
  Weight: 67 kg

DRUGS (12)
  1. BRINTELLIX [Suspect]
     Active Substance: VORTIOXETINE HYDROBROMIDE
     Indication: PRODUCT USED FOR UNKNOWN INDICATION
     Dosage: 1 DOSAGE FORM (LUNCH)
     Route: 065
     Dates: start: 201802
  2. BISOPROLOL [Suspect]
     Active Substance: BISOPROLOL
     Indication: CARDIAC FAILURE CHRONIC
     Dosage: 0.5 DOSAGE FORM (BREAKFAST)
     Route: 065
     Dates: start: 2016
  3. OMEPRAZOL [Suspect]
     Active Substance: OMEPRAZOLE
     Indication: PRODUCT USED FOR UNKNOWN INDICATION
     Route: 048
     Dates: start: 2014
  4. DELTIUS [Suspect]
     Active Substance: CHOLECALCIFEROL
     Indication: PRODUCT USED FOR UNKNOWN INDICATION
     Dosage: 1 DOSAGE FORM (EVERY 15 DAYS)
     Route: 065
     Dates: start: 201802
  5. MINITRAN [Suspect]
     Active Substance: NITROGLYCERIN
     Indication: ANGINA PECTORIS
     Dosage: 1 DOSAGE FORM, QD
     Route: 065
     Dates: start: 2014
  6. LORMETAZEPAM [Suspect]
     Active Substance: LORMETAZEPAM
     Indication: PRODUCT USED FOR UNKNOWN INDICATION
     Dosage: 1 DOSAGE FORM (DINNER)
     Route: 065
     Dates: start: 2016
  7. SEGURIL [Suspect]
     Active Substance: FUROSEMIDE
     Indication: ANGINA PECTORIS
     Dosage: 0.5 DOSAGE FORM (BREAKFAST)
     Route: 065
     Dates: start: 2016
  8. ENALAPRIL + HIDROCLOROTIAZIDA [Suspect]
     Active Substance: ENALAPRIL MALEATE\HYDROCHLOROTHIAZIDE
     Indication: CARDIAC FAILURE CHRONIC
     Dosage: 1 DOSAGE FORM (BREAKFAST)
     Route: 065
     Dates: start: 2017
  9. SINTROM [Suspect]
     Active Substance: ACENOCOUMAROL
     Indication: ANGINA PECTORIS
     Dosage: LUNCH
     Route: 065
     Dates: start: 2014
  10. SIMVASTATINA [Suspect]
     Active Substance: SIMVASTATIN
     Indication: ANGINA PECTORIS
     Dosage: 1 DOSAGE FORM (DINNER)
     Route: 065
     Dates: start: 2014
  11. DILIBAN [Suspect]
     Active Substance: ACETAMINOPHEN\TRAMADOL HYDROCHLORIDE
     Indication: PRODUCT USED FOR UNKNOWN INDICATION
     Dosage: 1 DOSAGE FORM (BREAKFAST/LUNCH/DINNER)
     Route: 065
     Dates: start: 201802
  12. FOSFOCINA                          /00552501/ [Suspect]
     Active Substance: FOSFOMYCIN
     Indication: URINARY TRACT INFECTION
     Dosage: 1 DOSAGE FORM (DINNER)
     Route: 065
     Dates: start: 201802

REACTIONS (12)
  - Feeling abnormal [Unknown]
  - Insomnia [Unknown]
  - Bone pain [Unknown]
  - Nausea [Unknown]
  - Arthralgia [Unknown]
  - Product storage error [Unknown]
  - Urinary tract infection [Unknown]
  - Vomiting [Unknown]
  - Cardiac failure chronic [Unknown]
  - Gingival bleeding [Unknown]
  - Fatigue [Unknown]
  - Nervousness [Unknown]

NARRATIVE: CASE EVENT DATE: 2017
